FAERS Safety Report 9288424 (Version 1)
Quarter: 2013Q2

REPORT INFORMATION
  Report Type: Spontaneous
  Country: DE (occurrence: DE)
  Receive Date: 20130514
  Receipt Date: 20130514
  Transmission Date: 20140414
  Serious: Yes (Hospitalization, Other)
  Sender: FDA-Public Use
  Company Number: DE-UCBSA-085709

PATIENT
  Age: 0 Year
  Sex: Female
  Weight: 3.2 kg

DRUGS (2)
  1. KEPPRA [Suspect]
     Indication: EPILEPSY
     Dosage: 2000 MG/D (UNKNOWN IF SAME DOSAGE THROUGHOUT PREGNANCY)
     Route: 064
     Dates: start: 20120313, end: 20121112
  2. L-THYROXIN [Concomitant]
     Indication: HYPOTHYROIDISM
     Route: 064
     Dates: start: 20120228, end: 20121112

REACTIONS (6)
  - Oxygen saturation decreased [Recovered/Resolved]
  - Apnoea neonatal [Recovered/Resolved]
  - Bradycardia neonatal [Recovered/Resolved]
  - Polycythaemia [Recovered/Resolved]
  - Premature baby [Unknown]
  - Foetal exposure during pregnancy [Recovered/Resolved]
